FAERS Safety Report 12297027 (Version 3)
Quarter: 2016Q2

REPORT INFORMATION
  Report Type: Spontaneous
  Country: CZ (occurrence: CZ)
  Receive Date: 20160422
  Receipt Date: 20160505
  Transmission Date: 20160815
  Serious: Yes (Hospitalization, Other)
  Sender: FDA-Public Use
  Company Number: CZ-ELI_LILLY_AND_COMPANY-CZ201604005361

PATIENT
  Sex: Male

DRUGS (6)
  1. HUMALOG [Suspect]
     Active Substance: INSULIN LISPRO
     Dosage: 50 IU, QD
     Route: 058
  2. EUTHYROX [Concomitant]
     Active Substance: LEVOTHYROXINE SODIUM
     Indication: THYROID DISORDER
  3. HUMALOG [Suspect]
     Active Substance: INSULIN LISPRO
     Indication: TYPE 1 DIABETES MELLITUS
     Dosage: 40 IU, QD
     Route: 058
     Dates: start: 2011
  4. HUMALOG [Suspect]
     Active Substance: INSULIN LISPRO
     Dosage: 50 IU, QD
     Route: 058
  5. IBUPROFEN ASTEC [Concomitant]
     Indication: PAIN
  6. HUMALOG [Suspect]
     Active Substance: INSULIN LISPRO
     Dosage: 60 IU, PRN
     Route: 058

REACTIONS (10)
  - Retinal ischaemia [Unknown]
  - Blood glucose increased [Not Recovered/Not Resolved]
  - Facial paresis [Recovering/Resolving]
  - Sarcoidosis [Unknown]
  - Uveitis [Unknown]
  - Pyrexia [Recovered/Resolved]
  - Fatigue [Recovered/Resolved]
  - Drug ineffective [Unknown]
  - Weight decreased [Recovered/Resolved]
  - Arthritis [Unknown]

NARRATIVE: CASE EVENT DATE: 201601
